FAERS Safety Report 7631431-4 (Version None)
Quarter: 2011Q3

REPORT INFORMATION
  Report Type: 
  Country: None (occurrence: None)
  Receive Date: 20110725
  Receipt Date: 20110711
  Transmission Date: 20111222
  Serious: Yes (Life-Threatening, Hospitalization, Other)
  Sender: FDA-Public Use
  Company Number: FR-ELI_LILLY_AND_COMPANY-FR201107002713

PATIENT
  Sex: Female

DRUGS (7)
  1. CYMBALTA [Suspect]
     Indication: NEURALGIA
     Dosage: 60 MG, QD
     Dates: start: 20110408, end: 20110422
  2. EFFERALGAN                         /00020001/ [Concomitant]
     Route: 048
  3. METHOTREXATE [Concomitant]
     Dosage: UNK
     Route: 048
  4. FOLIC ACID [Concomitant]
     Route: 048
  5. ALCOHOL [Concomitant]
  6. PRAZEPAM [Concomitant]
     Indication: ANXIETY
     Dosage: 10 MG, TID
     Route: 048
  7. MIRTAZAPINE [Concomitant]
     Indication: DEPRESSION
     Dosage: UNK
     Route: 048

REACTIONS (9)
  - OXYGEN SATURATION DECREASED [None]
  - OFF LABEL USE [None]
  - SUICIDE ATTEMPT [None]
  - COMA [None]
  - HYPOTHERMIA [None]
  - BLOOD ALCOHOL INCREASED [None]
  - HYPOTONIA [None]
  - LETHARGY [None]
  - DEPRESSION [None]
